FAERS Safety Report 11642844 (Version 1)
Quarter: 2015Q4

REPORT INFORMATION
  Report Type: Report from Study
  Country: IN (occurrence: IN)
  Receive Date: 20151020
  Receipt Date: 20151020
  Transmission Date: 20160304
  Serious: Yes (Other)
  Sender: FDA-Public Use
  Company Number: IN-ROCHE-1647384

PATIENT
  Age: 28 Year
  Sex: Female

DRUGS (2)
  1. PEG-INTERFERON ALFA 2A [Suspect]
     Active Substance: PEGINTERFERON ALFA-2A
     Indication: HEPATITIS C
     Dosage: 180 MCG SUBCUTANEOUSLY ONCE WEEKLY
     Route: 058
     Dates: start: 20150824
  2. COPEGUS [Suspect]
     Active Substance: RIBAVIRIN
     Indication: HEPATITIS C
     Dosage: 5 ORAL TABLETS DAILY
     Route: 048
     Dates: start: 20150824

REACTIONS (3)
  - Asthenia [Recovered/Resolved]
  - Full blood count decreased [Recovered/Resolved]
  - Platelet count decreased [Recovered/Resolved]
